FAERS Safety Report 10062001 (Version 1)
Quarter: 2014Q2

REPORT INFORMATION
  Report Type: Spontaneous
  Country: US (occurrence: None)
  Receive Date: 20140404
  Receipt Date: 20140404
  Transmission Date: 20141212
  Serious: Yes (Other)
  Sender: FDA-Public Use
  Company Number: None

PATIENT
  Age: 70 Year
  Sex: Female
  Weight: 90.72 kg

DRUGS (4)
  1. EXJADE [Suspect]
     Indication: IRON OVERLOAD
     Route: 048
  2. BENICAR [Concomitant]
  3. CARVEDILOL [Concomitant]
  4. OMEPRAZOLE [Concomitant]

REACTIONS (2)
  - Haemorrhoids [None]
  - Diarrhoea [None]
